FAERS Safety Report 11525383 (Version 1)
Quarter: 2015Q3

REPORT INFORMATION
  Report Type: Spontaneous
  Country: GB (occurrence: GB)
  Receive Date: 20150918
  Receipt Date: 20150918
  Transmission Date: 20151125
  Serious: Yes (Other)
  Sender: FDA-Public Use
  Company Number: GB-MEDA-2015090033

PATIENT
  Age: 34 Year
  Sex: Male
  Weight: 73.47 kg

DRUGS (2)
  1. RHINOLAST [Suspect]
     Active Substance: AZELASTINE HYDROCHLORIDE
     Indication: HYPERSENSITIVITY
     Route: 045
     Dates: start: 20150829, end: 20150831
  2. SONDATE XL [Concomitant]
     Active Substance: QUETIAPINE FUMARATE

REACTIONS (5)
  - Influenza like illness [Recovering/Resolving]
  - Asthenia [Recovering/Resolving]
  - Myalgia [Recovering/Resolving]
  - Insomnia [Recovering/Resolving]
  - Malaise [Recovering/Resolving]

NARRATIVE: CASE EVENT DATE: 20150829
